FAERS Safety Report 12517181 (Version 1)
Quarter: 2016Q2

REPORT INFORMATION
  Report Type: Spontaneous
  Country: US (occurrence: US)
  Receive Date: 20160630
  Receipt Date: 20160630
  Transmission Date: 20160815
  Serious: No
  Sender: FDA-Public Use
  Company Number: US-PFIZER INC-2016322534

PATIENT
  Sex: Female

DRUGS (2)
  1. XANAX [Interacting]
     Active Substance: ALPRAZOLAM
     Indication: SLEEP DISORDER
     Dosage: 1.5 DF, UNK(AT NIGHT)
  2. ADVIL [Suspect]
     Active Substance: IBUPROFEN
     Indication: SLEEP DISORDER
     Dosage: 2 DF, UNK (AT NIGHT )

REACTIONS (6)
  - Middle insomnia [Recovered/Resolved]
  - Condition aggravated [Unknown]
  - Drug hypersensitivity [Unknown]
  - Drug interaction [Unknown]
  - Oral pain [Unknown]
  - Product use issue [Unknown]
